FAERS Safety Report 26078525 (Version 2)
Quarter: 2025Q4

REPORT INFORMATION
  Report Type: Spontaneous
  Country: US (occurrence: US)
  Receive Date: 20251123
  Receipt Date: 20251202
  Transmission Date: 20260118
  Serious: Yes (Death, Life-Threatening, Hospitalization, Other)
  Sender: AUROBINDO
  Company Number: US-MLMSERVICE-20251105-PI695417-00271-1

PATIENT
  Age: 34 Year
  Sex: Female

DRUGS (11)
  1. HYDROXYCHLOROQUINE [Suspect]
     Active Substance: HYDROXYCHLOROQUINE
     Indication: Dermatomyositis
     Dosage: UNK
     Route: 065
  2. METHOTREXATE [Suspect]
     Active Substance: METHOTREXATE
     Indication: Dermatomyositis
     Dosage: UNK
     Route: 065
  3. PREDNISONE [Suspect]
     Active Substance: PREDNISONE
     Indication: Dermatomyositis
     Dosage: UNK
     Route: 065
  4. TACROLIMUS [Suspect]
     Active Substance: TACROLIMUS
     Indication: Dermatomyositis
     Dosage: UNK
     Route: 065
  5. ANAKINRA [Concomitant]
     Active Substance: ANAKINRA
     Indication: Product used for unknown indication
     Dosage: 100 MILLIGRAM, TWO TIMES A DAY (100 MG Q12H)
     Route: 065
  6. HYDROCORTISONE [Concomitant]
     Active Substance: HYDROCORTISONE
     Indication: Product used for unknown indication
     Dosage: 100 MILLIGRAM, 3 TIMES A DAY (100 MG Q8H)
     Route: 065
  7. NOREPINEPHRINE [Concomitant]
     Active Substance: NOREPINEPHRINE
     Indication: Product used for unknown indication
     Dosage: UNK (33 MG/MINUTE)
     Route: 065
  8. VASOPRESSIN [Concomitant]
     Active Substance: VASOPRESSIN
     Indication: Product used for unknown indication
     Dosage: UNK (0.03 UNITS/MINUTE)
     Route: 065
  9. VANCOMYCIN [Concomitant]
     Active Substance: VANCOMYCIN
     Indication: Bacterial sepsis
     Dosage: UNK
     Route: 065
  10. MEROPENEM [Concomitant]
     Active Substance: MEROPENEM
     Indication: Bacterial sepsis
     Dosage: UNK
     Route: 065
  11. TOBRAMYCIN [Concomitant]
     Active Substance: TOBRAMYCIN
     Indication: Bacterial sepsis
     Dosage: UNK
     Route: 065

REACTIONS (12)
  - Distributive shock [Fatal]
  - Histoplasmosis disseminated [Fatal]
  - Haemophagocytic lymphohistiocytosis [Fatal]
  - Lactic acidosis [Fatal]
  - Renal impairment [Fatal]
  - Disseminated intravascular coagulation [Fatal]
  - Hepatic function abnormal [Fatal]
  - Respiratory failure [Fatal]
  - Encephalopathy [Fatal]
  - Pseudomonal sepsis [Fatal]
  - Systemic inflammatory response syndrome [Fatal]
  - Bullous haemorrhagic dermatosis [Fatal]

NARRATIVE: CASE EVENT DATE: 20240101
